FAERS Safety Report 5447220-5 (Version None)
Quarter: 2007Q3

REPORT INFORMATION
  Report Type: 
  Country: None (occurrence: None)
  Receive Date: 20070910
  Receipt Date: 20070829
  Transmission Date: 20080115
  Serious: Yes (Other)
  Sender: FDA-Public Use
  Company Number: BR-JNJFOC-20070806633

PATIENT
  Age: 25 Year
  Sex: Female
  Weight: 55 kg

DRUGS (2)
  1. ORTHO EVRA [Suspect]
     Indication: CONTRACEPTION
     Route: 062
  2. HIXIZINE [Concomitant]

REACTIONS (4)
  - APPLICATION SITE PRURITUS [None]
  - HEPATITIS C [None]
  - PRURITUS [None]
  - RASH MACULAR [None]
